FAERS Safety Report 8339120-8 (Version None)
Quarter: 2012Q2

REPORT INFORMATION
  Report Type: 
  Country: None (occurrence: None)
  Receive Date: 20120507
  Receipt Date: 20120503
  Transmission Date: 20120825
  Serious: No
  Sender: FDA-Public Use
  Company Number: US-PFIZER INC-2012061497

PATIENT
  Sex: Male
  Weight: 95.2 kg

DRUGS (6)
  1. ZOLOFT [Suspect]
     Dosage: 200 MG; DAILY
     Dates: start: 20120101
  2. ZOLOFT [Suspect]
     Dosage: 125 MG; DAILY
     Dates: start: 20120307, end: 20120101
  3. ACIPHEX [Concomitant]
     Indication: GASTRIC DISORDER
     Dosage: 20 MG, DAILY
  4. ZOLOFT [Suspect]
     Indication: DEPRESSION
     Dosage: 100 MG, DAILY
  5. CLARINEX [Concomitant]
     Indication: HYPERSENSITIVITY
     Dosage: 5 MG, DAILY
  6. ZOCOR [Concomitant]
     Indication: BLOOD CHOLESTEROL INCREASED
     Dosage: 40 MG, DAILY

REACTIONS (4)
  - DRUG INEFFECTIVE [None]
  - PERSONALITY CHANGE [None]
  - FEELING ABNORMAL [None]
  - NERVOUSNESS [None]
